FAERS Safety Report 19656447 (Version 1)
Quarter: 2021Q3

REPORT INFORMATION
  Report Type: Spontaneous
  Country: DE (occurrence: DE)
  Receive Date: 20210804
  Receipt Date: 20210804
  Transmission Date: 20211014
  Serious: Yes (Other)
  Sender: FDA-Public Use
  Company Number: DE-MYLANLABS-2021M1047388

PATIENT
  Age: 34 Year
  Sex: Female

DRUGS (23)
  1. MITOXANTRONE [Suspect]
     Active Substance: MITOXANTRONE HYDROCHLORIDE
     Indication: ACUTE MYELOID LEUKAEMIA REFRACTORY
     Dosage: 12 MILLIGRAM/SQ. METER, QD
     Route: 065
  2. POTASSIUM CHLORIDE. [Concomitant]
     Active Substance: POTASSIUM CHLORIDE
     Dosage: UNK
     Route: 042
     Dates: start: 20200131, end: 20200131
  3. CLEXANE [Concomitant]
     Active Substance: ENOXAPARIN SODIUM
     Dosage: UNK 40MG/0.4ML
     Route: 058
     Dates: start: 20200109, end: 20200122
  4. CEFTAZIDINA [Concomitant]
     Dosage: UNK, 3 BOTTLE
     Route: 042
     Dates: start: 20200126, end: 20200126
  5. POTASSIUM CHLORIDE. [Concomitant]
     Active Substance: POTASSIUM CHLORIDE
     Indication: PRODUCT USED FOR UNKNOWN INDICATION
     Dosage: 40MG/40ML
     Route: 042
     Dates: start: 20200125, end: 20200125
  6. ACIC                               /00587301/ [Concomitant]
     Active Substance: ACYCLOVIR
     Indication: PRODUCT USED FOR UNKNOWN INDICATION
     Dosage: UNK UNK, QD
     Dates: start: 20200209, end: 20200222
  7. VENCLYXTO [Suspect]
     Active Substance: VENETOCLAX
     Dosage: 400 MILLIGRAM
     Route: 048
     Dates: start: 20200208, end: 20200222
  8. KALINOR RETARD P [Concomitant]
     Active Substance: POTASSIUM CHLORIDE
     Dosage: UNK
     Dates: start: 20200118, end: 20200118
  9. CEFTAZIDINA [Concomitant]
     Dosage: UNK, 3 BOTTLE
     Route: 042
     Dates: start: 20200116, end: 20200119
  10. POTASSIUM CHLORIDE. [Concomitant]
     Active Substance: POTASSIUM CHLORIDE
     Dosage: UNK
     Route: 042
     Dates: start: 20200209, end: 20200209
  11. POTASSIUM CHLORIDE. [Concomitant]
     Active Substance: POTASSIUM CHLORIDE
     Dosage: UNK
     Dates: start: 20200208, end: 20200208
  12. CEFTAZIDINA [Concomitant]
     Dosage: UNK, 2 BOTTLE
     Route: 042
     Dates: start: 20200125, end: 20200125
  13. CYTARABINE. [Suspect]
     Active Substance: CYTARABINE
     Indication: ACUTE MYELOID LEUKAEMIA REFRACTORY
     Dosage: 1 G/M2
     Route: 065
  14. VENCLYXTO [Suspect]
     Active Substance: VENETOCLAX
     Dosage: 100 MILLIGRAM
     Route: 048
     Dates: start: 20200206, end: 20200206
  15. AMBISONE [Concomitant]
     Active Substance: AMPHOTERICIN B
     Indication: PRODUCT USED FOR UNKNOWN INDICATION
     Dosage: 4 BOTTLE
     Route: 058
     Dates: start: 20200201, end: 20200222
  16. VENCLYXTO [Suspect]
     Active Substance: VENETOCLAX
     Indication: ACUTE MYELOID LEUKAEMIA
     Dosage: 200 MILLIGRAM, QD
     Route: 048
     Dates: start: 20200207, end: 20200207
  17. KALINOR RETARD P [Concomitant]
     Active Substance: POTASSIUM CHLORIDE
     Dosage: UNK
     Dates: start: 20200123, end: 20200123
  18. POTASSIUM CHLORIDE. [Concomitant]
     Active Substance: POTASSIUM CHLORIDE
     Dosage: UNK UNK, QD
     Route: 042
     Dates: start: 20200204, end: 20200204
  19. CLEXANE [Concomitant]
     Active Substance: ENOXAPARIN SODIUM
     Dosage: 40MG/0.4ML
     Route: 058
     Dates: start: 20200201, end: 20200218
  20. KALINOR RETARD P [Concomitant]
     Active Substance: POTASSIUM CHLORIDE
     Dosage: UNK
     Dates: start: 20200212, end: 20200212
  21. CEFTAZIDINA [Concomitant]
     Dosage: 2 BOTTLE
     Dates: start: 20200220, end: 20200220
  22. AZACITIDINE. [Concomitant]
     Active Substance: AZACITIDINE
     Indication: ACUTE MYELOID LEUKAEMIA
     Dosage: UNK
  23. FOLVERLAN [Concomitant]
     Active Substance: FOLIC ACID
     Indication: PRODUCT USED FOR UNKNOWN INDICATION
     Dosage: UNK UNK, QD
     Dates: start: 20200109, end: 20200222

REACTIONS (7)
  - Pyrexia [Unknown]
  - Off label use [Unknown]
  - Maternal exposure during pregnancy [Unknown]
  - Neutropenia [Unknown]
  - Premature delivery [Recovered/Resolved]
  - Therapeutic response unexpected [Unknown]
  - Live birth [Unknown]

NARRATIVE: CASE EVENT DATE: 202002
